FAERS Safety Report 14962875 (Version 2)
Quarter: 2018Q3

REPORT INFORMATION
  Report Type: Report from Study
  Country: NZ (occurrence: NZ)
  Receive Date: 20180601
  Receipt Date: 20180801
  Transmission Date: 20181010
  Serious: Yes (Death, Hospitalization, Congenital Anomaly)
  Sender: FDA-Public Use
  Company Number: PHHY2018NZ011663

PATIENT
  Age: 0 Day
  Sex: Female
  Weight: 7.28 kg

DRUGS (1)
  1. OMNITROPE [Suspect]
     Active Substance: SOMATROPIN
     Indication: GROWTH RETARDATION
     Dosage: 0.2 MG, QD
     Route: 058
     Dates: start: 20180227

REACTIONS (5)
  - Acute respiratory failure [Fatal]
  - Apnoea [Fatal]
  - Chronic respiratory disease [Fatal]
  - Congenital anomaly [Fatal]
  - Respiratory failure [Fatal]

NARRATIVE: CASE EVENT DATE: 20170329
